FAERS Safety Report 4876430-0 (Version None)
Quarter: 2005Q4

REPORT INFORMATION
  Report Type: 
  Country: None (occurrence: None)
  Receive Date: 20051206
  Receipt Date: 20050920
  Transmission Date: 20060501
  Serious: Yes (Death)
  Sender: FDA-Public Use
  Company Number: USA050496064

PATIENT
  Age: 56 Year
  Sex: Female

DRUGS (3)
  1. CYMBALTA [Suspect]
     Indication: SLEEP DISORDER
     Dosage: 60 MG
     Dates: start: 20050104
  2. TRAZODONE HCL [Concomitant]
  3. CELEXA [Concomitant]

REACTIONS (1)
  - COMPLETED SUICIDE [None]
